FAERS Safety Report 22953033 (Version 4)
Quarter: 2024Q1

REPORT INFORMATION
  Report Type: Spontaneous
  Country: US (occurrence: US)
  Receive Date: 20230918
  Receipt Date: 20240322
  Transmission Date: 20240410
  Serious: Yes (Other)
  Sender: FDA-Public Use
  Company Number: US-REGENERON PHARMACEUTICALS, INC.-2023-113331

PATIENT
  Sex: Male

DRUGS (5)
  1. EYLEA [Suspect]
     Active Substance: AFLIBERCEPT
     Indication: Neovascular age-related macular degeneration
     Dosage: 2 MG, Q4W (EVERY 28 DAYS), INTO LEFT EYE, (RECEIVING TREATMENT IN BOTH EYES), (FORMULATION: VIAL)
     Dates: start: 2019, end: 2023
  2. EYLEA [Suspect]
     Active Substance: AFLIBERCEPT
     Dosage: 2 MG, Q4W (EVERY 28 DAYS) INTO RIGHT EYE; (FORMULATION: VIAL)
     Dates: start: 2019, end: 20240130
  3. AMLODIPINE [Concomitant]
     Active Substance: AMLODIPINE BESYLATE
     Indication: Product used for unknown indication
  4. SYNTHROID [Concomitant]
     Active Substance: LEVOTHYROXINE SODIUM
     Indication: Product used for unknown indication
  5. TYLENOL [Concomitant]
     Active Substance: ACETAMINOPHEN
     Indication: Product used for unknown indication

REACTIONS (11)
  - Blindness transient [Recovered/Resolved]
  - Blood pressure abnormal [Recovering/Resolving]
  - Eye swelling [Unknown]
  - Visual impairment [Unknown]
  - Metamorphopsia [Unknown]
  - Visual brightness [Unknown]
  - Condition aggravated [Unknown]
  - Nasopharyngitis [Unknown]
  - Headache [Unknown]
  - Product dose omission issue [Unknown]
  - Drug ineffective [Unknown]

NARRATIVE: CASE EVENT DATE: 20210101
